FAERS Safety Report 26122820 (Version 1)
Quarter: 2025Q4

REPORT INFORMATION
  Report Type: Spontaneous
  Country: EU (occurrence: EU)
  Receive Date: 20251204
  Receipt Date: 20251204
  Transmission Date: 20260117
  Serious: Yes (Hospitalization, Other)
  Sender: TAKEDA
  Company Number: EU-ARGENX-2025-ARGX-DE015628

PATIENT
  Age: 77 Year
  Sex: Male

DRUGS (1)
  1. HUMAN IMMUNOGLOBULIN G [Suspect]
     Active Substance: HUMAN IMMUNOGLOBULIN G
     Indication: Product used for unknown indication
     Dosage: 145 GRAM
     Dates: start: 20250730, end: 20250803

REACTIONS (2)
  - Papilloedema [Unknown]
  - Cyanopsia [Unknown]

NARRATIVE: CASE EVENT DATE: 20251030
